FAERS Safety Report 5077193-9 (Version None)
Quarter: 2006Q3

REPORT INFORMATION
  Report Type: 
  Country: None (occurrence: None)
  Receive Date: 20060810
  Receipt Date: 20060103
  Transmission Date: 20061208
  Serious: Yes (Other)
  Sender: FDA-Public Use
  Company Number: US-GLAXOSMITHKLINE-A0587564A

PATIENT
  Age: 53 Year
  Sex: Female

DRUGS (2)
  1. PAROXETINE HCL [Suspect]
     Indication: MAJOR DEPRESSION
     Dosage: 40MG PER DAY
     Route: 048
     Dates: start: 20051127, end: 20051218
  2. DARVOCET [Concomitant]

REACTIONS (6)
  - ABNORMAL DREAMS [None]
  - CONFUSIONAL STATE [None]
  - HAEMATEMESIS [None]
  - INSOMNIA [None]
  - RASH [None]
  - VOMITING [None]
